FAERS Safety Report 24162245 (Version 1)
Quarter: 2024Q3

REPORT INFORMATION
  Report Type: Spontaneous
  Country: US (occurrence: US)
  Receive Date: 20240801
  Receipt Date: 20240801
  Transmission Date: 20241016
  Serious: Yes (Life-Threatening, Hospitalization, Other)
  Sender: PFIZER
  Company Number: US-PFIZER INC-PV202400098983

PATIENT

DRUGS (1)
  1. COLESTIPOL HYDROCHLORIDE [Suspect]
     Active Substance: COLESTIPOL HYDROCHLORIDE
     Indication: Diarrhoea
     Dosage: UNK
     Route: 048

REACTIONS (8)
  - Wrong technique in product usage process [Unknown]
  - Choking [Unknown]
  - Pneumonia aspiration [Unknown]
  - Oxygen saturation decreased [Unknown]
  - Product size issue [Unknown]
  - Product solubility abnormal [Unknown]
  - Cardiac disorder [Unknown]
  - Off label use [Unknown]
